FAERS Safety Report 18226347 (Version 1)
Quarter: 2020Q3

REPORT INFORMATION
  Report Type: Spontaneous
  Country: US (occurrence: US)
  Receive Date: 20200903
  Receipt Date: 20200903
  Transmission Date: 20201103
  Serious: Yes (Hospitalization, Other)
  Sender: FDA-Public Use
  Company Number: US-ABBVIE-20K-163-3548701-00

PATIENT
  Sex: Male
  Weight: 79.45 kg

DRUGS (2)
  1. IMBRUVICA [Suspect]
     Active Substance: IBRUTINIB
     Indication: CHRONIC LYMPHOCYTIC LEUKAEMIA
     Route: 048
  2. IMBRUVICA [Suspect]
     Active Substance: IBRUTINIB
     Indication: CHRONIC LYMPHOCYTIC LEUKAEMIA
     Route: 048
     Dates: start: 2016

REACTIONS (8)
  - Heart rate increased [Recovered/Resolved]
  - Neutrophil count decreased [Recovered/Resolved]
  - Blood pressure increased [Recovered/Resolved]
  - Atrial fibrillation [Not Recovered/Not Resolved]
  - Splenomegaly [Recovered/Resolved]
  - Limb operation [Recovered/Resolved]
  - Platelet count decreased [Recovered/Resolved]
  - Therapeutic product effect decreased [Unknown]

NARRATIVE: CASE EVENT DATE: 2016
